FAERS Safety Report 7796160-5 (Version None)
Quarter: 2011Q4

REPORT INFORMATION
  Report Type: 
  Country: None (occurrence: None)
  Receive Date: 20111004
  Receipt Date: 20110927
  Transmission Date: 20120403
  Serious: Yes (Hospitalization)
  Sender: FDA-Public Use
  Company Number: AU-B.I. PHARMACEUTICALS,INC./RIDGEFIELD-2011-AU-01616AU

PATIENT
  Sex: Male

DRUGS (3)
  1. PRADAXA [Suspect]
     Indication: CEREBROVASCULAR ACCIDENT PROPHYLAXIS
     Dosage: 150 MG
  2. AMIODARONE HCL [Concomitant]
     Dosage: 200 MG
  3. PERINDOPRIL ERBUMINE [Concomitant]
     Dosage: 2.5 MG

REACTIONS (3)
  - LOSS OF CONSCIOUSNESS [None]
  - HEAD INJURY [None]
  - FALL [None]
